FAERS Safety Report 7753767-9 (Version None)
Quarter: 2011Q3

REPORT INFORMATION
  Report Type: 
  Country: None (occurrence: None)
  Receive Date: 20110915
  Receipt Date: 20110914
  Transmission Date: 20111222
  Serious: Yes (Hospitalization)
  Sender: FDA-Public Use
  Company Number: FR-TEVA-274280ISR

PATIENT
  Sex: Male
  Weight: 59 kg

DRUGS (26)
  1. COSYNTROPIN [Concomitant]
  2. PIPERACILLIN AND TAZOBACTAM [Concomitant]
  3. ALLOPURINOL [Concomitant]
  4. POTASSIUM CHLORIDE [Concomitant]
  5. DEXAMETHASONE [Suspect]
     Indication: MULTIPLE MYELOMA
     Dates: start: 20100722
  6. IPRATROPIUM BROMIDE [Concomitant]
  7. DEXAMETHASONE [Suspect]
     Dates: start: 20101209, end: 20110105
  8. CALCIPARINE [Concomitant]
  9. VENTOLIN [Concomitant]
  10. CIPROFLOXACIN HCL [Concomitant]
  11. ASPIRIN [Concomitant]
  12. SMECTA [Concomitant]
  13. XANAX [Concomitant]
  14. LENALIDOMIDE [Suspect]
     Indication: MULTIPLE MYELOMA
     Route: 048
     Dates: start: 20100722
  15. LENALIDOMIDE [Suspect]
     Route: 048
     Dates: start: 20101209, end: 20110105
  16. HYDROCORTISONE [Concomitant]
  17. TRAMADOL HCL [Concomitant]
  18. LASIX [Concomitant]
  19. ACETAMINOPHEN [Concomitant]
  20. CALCIUM GLUCONATE [Concomitant]
  21. FLUCONAZOLE [Concomitant]
  22. SODIUM CHLORIDE [Concomitant]
  23. VOLUVEN [Concomitant]
  24. POTASSIUM CHLORIDE [Concomitant]
  25. GUTRON [Concomitant]
  26. TIORFAN [Concomitant]

REACTIONS (8)
  - DECREASED APPETITE [None]
  - PULMONARY FIBROSIS [None]
  - GENERAL PHYSICAL HEALTH DETERIORATION [None]
  - CHILLS [None]
  - FALL [None]
  - PNEUMONIA [None]
  - RIB FRACTURE [None]
  - EMPHYSEMA [None]
